FAERS Safety Report 5625447-7 (Version None)
Quarter: 2008Q1

REPORT INFORMATION
  Report Type: 
  Country: None (occurrence: None)
  Receive Date: 20080211
  Receipt Date: 20080130
  Transmission Date: 20080703
  Serious: Yes (Other)
  Sender: FDA-Public Use
  Company Number: 2008-171585-NL

PATIENT
  Age: 53 Year
  Sex: Female
  Weight: 78.5 kg

DRUGS (6)
  1. IMPLANON [Suspect]
     Indication: MENORRHAGIA
     Dosage: SUBDERMAL
     Route: 059
     Dates: start: 20061116
  2. FLOVENT [Concomitant]
  3. FLUNASE [Concomitant]
  4. GLUCOPHAGE [Concomitant]
  5. CLINORIL [Concomitant]
  6. FLEXERIL [Concomitant]

REACTIONS (4)
  - BREAST CANCER FEMALE [None]
  - OVERWEIGHT [None]
  - REFUSAL OF TREATMENT BY PATIENT [None]
  - TREATMENT NONCOMPLIANCE [None]
